FAERS Safety Report 9326074 (Version 1)
Quarter: 2013Q2

REPORT INFORMATION
  Report Type: Spontaneous
  Country: DE (occurrence: DE)
  Receive Date: 20130604
  Receipt Date: 20130604
  Transmission Date: 20140414
  Serious: Yes (Life-Threatening, Hospitalization)
  Sender: FDA-Public Use
  Company Number: DE-ASTRAZENECA-2013SE38482

PATIENT
  Sex: Male

DRUGS (2)
  1. HYDROCHLOROTHIAZIDE\METOPROLOL SUCCINATE [Suspect]
     Route: 048
  2. AMLODIPINE BESILATE [Suspect]

REACTIONS (1)
  - Suicide attempt [Unknown]
